FAERS Safety Report 14853156 (Version 1)
Quarter: 2018Q2

REPORT INFORMATION
  Report Type: Spontaneous
  Country: US (occurrence: US)
  Receive Date: 20180507
  Receipt Date: 20180507
  Transmission Date: 20180711
  Serious: No
  Sender: FDA-Public Use
  Company Number: US-ELI_LILLY_AND_COMPANY-US201805000527

PATIENT
  Sex: Male

DRUGS (1)
  1. CIALIS [Suspect]
     Active Substance: TADALAFIL
     Indication: TESTICULAR PAIN
     Dosage: 5 MG, UNKNOWN

REACTIONS (2)
  - Micturition disorder [Unknown]
  - Testicular pain [Recovered/Resolved]
